FAERS Safety Report 9920416 (Version 2)
Quarter: 2014Q1

REPORT INFORMATION
  Report Type: Spontaneous
  Country: US (occurrence: US)
  Receive Date: 20140224
  Receipt Date: 20140304
  Transmission Date: 20141002
  Serious: Yes (Hospitalization)
  Sender: FDA-Public Use
  Company Number: US-LUNDBECK-DKLU1097097

PATIENT
  Sex: Female

DRUGS (2)
  1. SABRIL (FOR ORAL SOLUTION) [Suspect]
     Indication: EPILEPSY
     Route: 048
     Dates: start: 20091008
  2. SABRIL (FOR ORAL SOLUTION) [Suspect]
     Route: 048

REACTIONS (3)
  - Malaise [Recovering/Resolving]
  - Convulsion [Recovering/Resolving]
  - Drug dose omission [Recovered/Resolved]
